FAERS Safety Report 15318764 (Version 1)
Quarter: 2018Q3

REPORT INFORMATION
  Report Type: Spontaneous
  Country: US (occurrence: US)
  Receive Date: 20180818
  Receipt Date: 20180818
  Transmission Date: 20181010
  Serious: Yes (Disabling)
  Sender: FDA-Public Use
  Company Number: None

PATIENT
  Age: 70 Year
  Sex: Female
  Weight: 83.25 kg

DRUGS (15)
  1. LEXAPRO [Concomitant]
     Active Substance: ESCITALOPRAM OXALATE
  2. BIOTIN [Concomitant]
     Active Substance: BIOTIN
  3. CALCIUM CITRATE [Concomitant]
     Active Substance: CALCIUM CITRATE
  4. GABAPENTIN. [Concomitant]
     Active Substance: GABAPENTIN
  5. TRAMADOL. [Concomitant]
     Active Substance: TRAMADOL
  6. ROPINIROLE. [Concomitant]
     Active Substance: ROPINIROLE
  7. WARFARIN [Concomitant]
     Active Substance: WARFARIN
  8. VIT. D3 [Concomitant]
  9. LANZOPRAZOLE [Concomitant]
     Active Substance: LANSOPRAZOLE
  10. TITANIUM ROD [Concomitant]
  11. TYLENOL [Concomitant]
     Active Substance: ACETAMINOPHEN
  12. ALPHA LIPOIC ACID [Concomitant]
     Active Substance: .ALPHA.-LIPOIC ACID
  13. FERROUS SULFATE. [Concomitant]
     Active Substance: FERROUS SULFATE
  14. DOFETILIDE. [Suspect]
     Active Substance: DOFETILIDE
     Indication: ATRIAL FIBRILLATION
     Dosage: ?          QUANTITY:2 CAPSULE(S);?
     Route: 048
     Dates: start: 20180325, end: 20180810
  15. VIT. C ESTER [Concomitant]

REACTIONS (2)
  - Atrial flutter [None]
  - Product substitution issue [None]

NARRATIVE: CASE EVENT DATE: 20180401
